FAERS Safety Report 7415382-6 (Version None)
Quarter: 2011Q2

REPORT INFORMATION
  Report Type: 
  Country: None (occurrence: None)
  Receive Date: 20110414
  Receipt Date: 20110328
  Transmission Date: 20111010
  Serious: Yes (Other)
  Sender: FDA-Public Use
  Company Number: B0710894A

PATIENT
  Sex: Female
  Weight: 55 kg

DRUGS (5)
  1. SERETIDE [Suspect]
     Indication: ASTHMA
     Route: 055
     Dates: start: 20100601
  2. VITAMIN B-12 [Concomitant]
     Indication: VITAMIN B12 DEFICIENCY
     Dosage: 1MG PER DAY
     Route: 065
  3. BISOPROLOL [Concomitant]
     Dosage: 2.5MG PER DAY
     Route: 065
     Dates: start: 20100101
  4. THYROXINE [Concomitant]
     Indication: THYROIDECTOMY
     Dosage: 150MG PER DAY
     Route: 065
     Dates: start: 19700101
  5. SPIRIVA [Concomitant]
     Indication: ASTHMA
     Dosage: 18MCG PER DAY
     Route: 055
     Dates: start: 20050501

REACTIONS (2)
  - ASTHMA [None]
  - TREATMENT NONCOMPLIANCE [None]
